FAERS Safety Report 11054774 (Version 1)
Quarter: 2015Q2

REPORT INFORMATION
  Report Type: Spontaneous
  Country: FR (occurrence: None)
  Receive Date: 20150420
  Receipt Date: 20150420
  Transmission Date: 20150821
  Serious: Yes (Hospitalization)
  Sender: FDA-Public Use
  Company Number: EY-BP-FR-2015-036

PATIENT
  Age: 40 Year
  Sex: Male

DRUGS (2)
  1. BUPRENORPHINE [Suspect]
     Active Substance: BUPRENORPHINE
     Indication: PRODUCT USED FOR UNKNOWN INDICATION
  2. HEROIN (UNKNOWN) (DIAMORPHINE) [Concomitant]

REACTIONS (7)
  - Sensory loss [None]
  - Embolic stroke [None]
  - Peripheral ischaemia [None]
  - Intentional product misuse [None]
  - Hemiparesis [None]
  - Loss of consciousness [None]
  - Aphasia [None]
